FAERS Safety Report 5318713-6 (Version None)
Quarter: 2007Q2

REPORT INFORMATION
  Report Type: 
  Country: None (occurrence: None)
  Receive Date: 20070503
  Receipt Date: 20070503
  Transmission Date: 20071010
  Serious: Yes (Death)
  Sender: FDA-Public Use
  Company Number: None

PATIENT
  Age: 36 Year
  Sex: Male

DRUGS (2)
  1. REMERON [Suspect]
     Indication: MAJOR DEPRESSION
     Dosage: 15-30 MG H.S. PO
     Route: 048
     Dates: start: 20061217, end: 20061227
  2. REMERON [Suspect]
     Indication: PANIC DISORDER
     Dosage: 15-30 MG H.S. PO
     Route: 048
     Dates: start: 20061217, end: 20061227

REACTIONS (11)
  - ANXIETY [None]
  - COMPLETED SUICIDE [None]
  - CONDITION AGGRAVATED [None]
  - CONFUSIONAL STATE [None]
  - FEAR [None]
  - FEELING ABNORMAL [None]
  - FRUSTRATION [None]
  - INTENTIONAL OVERDOSE [None]
  - SUICIDAL IDEATION [None]
  - SUICIDE ATTEMPT [None]
  - TREATMENT NONCOMPLIANCE [None]
